FAERS Safety Report 5074539-2 (Version None)
Quarter: 2006Q3

REPORT INFORMATION
  Report Type: 
  Country: None (occurrence: None)
  Receive Date: 20060803
  Receipt Date: 20060726
  Transmission Date: 20061208
  Serious: Yes (Other)
  Sender: FDA-Public Use
  Company Number: 2006092485

PATIENT
  Age: 29 Year
  Sex: Female

DRUGS (1)
  1. ATARAX [Suspect]
     Indication: DRUG USE FOR UNKNOWN INDICATION
     Dosage: ORAL
     Route: 048

REACTIONS (6)
  - DIZZINESS [None]
  - FEELING HOT [None]
  - INTENTIONAL OVERDOSE [None]
  - MEDICATION RESIDUE [None]
  - SUICIDE ATTEMPT [None]
  - VOMITING [None]
